FAERS Safety Report 15200090 (Version 1)
Quarter: 2018Q4

REPORT INFORMATION
  Report Type: Report from Study
  Country: US (occurrence: US)
  Receive Date: 20180726
  Receipt Date: 20180726
  Transmission Date: 20190204
  Serious: Yes (Hospitalization, Other)
  Sender: FDA-Public Use
  Company Number: US-ROCHE-2129311

PATIENT
  Age: 51 Year
  Sex: Female
  Weight: 146.6 kg

DRUGS (4)
  1. TGR-1202 (PI3K DELTA INHIBITOR) [Suspect]
     Active Substance: UMBRALISIB
     Indication: B-CELL LYMPHOMA RECURRENT
  2. OBINUTUZUMAB. [Suspect]
     Active Substance: OBINUTUZUMAB
     Indication: B-CELL LYMPHOMA RECURRENT
     Route: 042
     Dates: start: 20180330
  3. OBINUTUZUMAB. [Suspect]
     Active Substance: OBINUTUZUMAB
     Indication: B-CELL LYMPHOMA REFRACTORY
     Route: 042
     Dates: start: 20180414
  4. TGR-1202 (PI3K DELTA INHIBITOR) [Suspect]
     Active Substance: UMBRALISIB
     Indication: B-CELL LYMPHOMA REFRACTORY
     Route: 048
     Dates: start: 20180330, end: 20180414

REACTIONS (3)
  - Pyrexia [Recovered/Resolved]
  - Intracranial pressure increased [Unknown]
  - Lung infection [Recovered/Resolved]

NARRATIVE: CASE EVENT DATE: 20180415
